FAERS Safety Report 12850397 (Version 2)
Quarter: 2017Q4

REPORT INFORMATION
  Report Type: Spontaneous
  Country: GB (occurrence: GB)
  Receive Date: 20161014
  Receipt Date: 20171025
  Transmission Date: 20180320
  Serious: Yes (Death)
  Sender: FDA-Public Use
  Company Number: GB-ABBVIE-16P-167-1754141-00

PATIENT
  Age: 86 Year
  Sex: Male
  Weight: 74 kg

DRUGS (2)
  1. LEUPRORELIN ACETATE [Suspect]
     Active Substance: LEUPROLIDE ACETATE
     Indication: PROSTATE CANCER
     Dosage: 11.25 MG, UNK
     Route: 065
     Dates: start: 20150505, end: 20160514
  2. ATORVASTATIN [Concomitant]
     Active Substance: ATORVASTATIN
     Indication: PRODUCT USED FOR UNKNOWN INDICATION
     Dosage: 40 MG, UNK
     Route: 065
     Dates: start: 20130614, end: 20160825

REACTIONS (1)
  - Death [Fatal]

NARRATIVE: CASE EVENT DATE: 20160916
